FAERS Safety Report 12630761 (Version 3)
Quarter: 2016Q4

REPORT INFORMATION
  Report Type: Spontaneous
  Country: US (occurrence: US)
  Receive Date: 20160808
  Receipt Date: 20161024
  Transmission Date: 20170207
  Serious: No
  Sender: FDA-Public Use
  Company Number: US-PFIZER INC-2016374408

PATIENT
  Age: 69 Year
  Sex: Female
  Weight: 117.93 kg

DRUGS (11)
  1. DEXAMETHASONE. [Concomitant]
     Active Substance: DEXAMETHASONE
     Dosage: 20 MG, [TAKE 5 TABLET PO 12 HOURS PRIOR TO FIRST CHEMO]
     Route: 048
  2. PROCHLORPERAZINE MALEATE. [Concomitant]
     Active Substance: PROCHLORPERAZINE MALEATE
     Indication: NAUSEA
     Dosage: UNK, AS NEEDED, (TAKE 1/2 TO 1 TABLET EVERY 4 TO 6 HOURS X 3 DAYS AFTER EACH CHEMO)
     Route: 048
  3. TRAMADOL HCL [Concomitant]
     Active Substance: TRAMADOL HYDROCHLORIDE
     Dosage: 50 MG, AS NEEDED (TAKE 1 TABLET FOUR TIMES A DAY AS NEEDED)
     Route: 048
  4. XALKORI [Suspect]
     Active Substance: CRIZOTINIB
     Indication: LUNG CANCER METASTATIC
     Dosage: 250 MG, 2X/DAY
     Route: 048
     Dates: start: 20160728
  5. DEXAMETHASONE. [Concomitant]
     Active Substance: DEXAMETHASONE
     Dosage: 20 MG, UNK, [5 TABLETS PO 6 HOURS PRIOR TO FIRST CHEMO]
     Route: 048
  6. EMLA [Concomitant]
     Active Substance: LIDOCAINE\PRILOCAINE
     Dosage: [LIDOCAINE-2.5%, PRILOCAINE-2.5%] (TAKE 1 APPLICATION TO PORT SITE 1-2 HOURS PRIOR TO CHEMO)
  7. DEXAMETHASONE. [Concomitant]
     Active Substance: DEXAMETHASONE
     Dosage: 8 MG, UNK, [2 TABLET PO Q AM FOR 3 DAYS]
     Route: 048
  8. NEULASTA [Concomitant]
     Active Substance: PEGFILGRASTIM
     Dosage: (6 MG/0.6 ML; TAKE 1 SYRINGE 24 HOURS TO 72 HOURS AFTER CHEMOTHERAPY)
     Route: 058
  9. SCOPOLAMINE [Concomitant]
     Active Substance: SCOPOLAMINE
     Indication: NAUSEA
     Dosage: UNK, AS NEEDED, (1 MG/3 DAYS/ APPLY 1 TRANSDERMAL PATCH 72 HOURS BEHIND EAR)
     Route: 062
  10. LETROZOLE. [Concomitant]
     Active Substance: LETROZOLE
     Dosage: 2.5 MG, 1X/DAY, (FOR 30 DAYS)
     Route: 048
  11. ZOFRAN [Concomitant]
     Active Substance: ONDANSETRON HYDROCHLORIDE
     Indication: NAUSEA
     Dosage: 8 MG, AS NEEDED, (1 TABLET EVERY 8 HOURS FOR THREE DAYS AFTER CHEMOTHERAPY)
     Route: 048

REACTIONS (5)
  - Visual impairment [Recovered/Resolved]
  - Diarrhoea [Recovered/Resolved]
  - Nausea [Recovered/Resolved]
  - Feeling abnormal [Unknown]
  - Neoplasm progression [Unknown]

NARRATIVE: CASE EVENT DATE: 20160730
